FAERS Safety Report 5901838-1 (Version None)
Quarter: 2008Q3

REPORT INFORMATION
  Report Type: 
  Country: None (occurrence: None)
  Receive Date: 20080929
  Receipt Date: 20080925
  Transmission Date: 20090109
  Serious: Yes (Death, Hospitalization)
  Sender: FDA-Public Use
  Company Number: BR-ABBOTT-08P-020-0478421-00

PATIENT
  Sex: Male

DRUGS (4)
  1. HUMIRA [Suspect]
     Indication: RHEUMATOID ARTHRITIS
     Route: 058
     Dates: start: 20071101, end: 20080201
  2. AZATIOPRINE [Concomitant]
     Indication: DRUG USE FOR UNKNOWN INDICATION
  3. CLONAZEPAM [Concomitant]
     Indication: DEPRESSION
  4. FLUVOXAMINE MALEATE [Concomitant]
     Indication: DEPRESSION

REACTIONS (1)
  - HEPATITIS [None]
